FAERS Safety Report 19738666 (Version 1)
Quarter: 2021Q3

REPORT INFORMATION
  Report Type: Report from Study
  Country: US (occurrence: US)
  Receive Date: 20210823
  Receipt Date: 20210823
  Transmission Date: 20211014
  Serious: Yes (Other)
  Sender: FDA-Public Use
  Company Number: US-MYLANLABS-2021M1054241

PATIENT
  Age: 43 Year
  Sex: Female
  Weight: 58.9 kg

DRUGS (1)
  1. GLATIRAMER ACETATE INJECTION [Suspect]
     Active Substance: GLATIRAMER ACETATE
     Indication: MULTIPLE SCLEROSIS
     Dosage: 40 MILLIGRAM, Q3W

REACTIONS (5)
  - Myalgia [Unknown]
  - Injection site pain [Unknown]
  - Nausea [Unknown]
  - Syncope [Unknown]
  - Feeling cold [Unknown]

NARRATIVE: CASE EVENT DATE: 202108
